FAERS Safety Report 14742070 (Version 3)
Quarter: 2019Q1

REPORT INFORMATION
  Report Type: Spontaneous
  Country: US (occurrence: US)
  Receive Date: 20180410
  Receipt Date: 20190103
  Transmission Date: 20190417
  Serious: Yes (Death, Other)
  Sender: FDA-Public Use
  Company Number: US-ASTRAZENECA-2018SE42206

PATIENT
  Sex: Female

DRUGS (23)
  1. PRILOSEC [Suspect]
     Active Substance: OMEPRAZOLE MAGNESIUM
     Indication: GASTROOESOPHAGEAL REFLUX DISEASE
     Route: 048
     Dates: start: 2009, end: 2016
  2. PRILOSEC [Suspect]
     Active Substance: OMEPRAZOLE MAGNESIUM
     Indication: GASTROOESOPHAGEAL REFLUX DISEASE
     Route: 048
     Dates: start: 2009, end: 2012
  3. ALLOPURINOL. [Concomitant]
     Active Substance: ALLOPURINOL
     Dates: start: 2017
  4. CALCITRIOL. [Concomitant]
     Active Substance: CALCITRIOL
     Dates: start: 2011, end: 2017
  5. FUROSEMIDE. [Concomitant]
     Active Substance: FUROSEMIDE
     Dates: start: 2011, end: 2017
  6. VITAMIN C [Concomitant]
     Active Substance: ASCORBIC ACID
  7. DALIRESP [Concomitant]
     Active Substance: ROFLUMILAST
     Dates: start: 20110920
  8. DUONEB [Concomitant]
     Active Substance: ALBUTEROL SULFATE\IPRATROPIUM BROMIDE
     Dates: start: 20110920
  9. NITROSTAT [Concomitant]
     Active Substance: NITROGLYCERIN
     Dates: start: 20110503
  10. VITAMIN D [Concomitant]
     Active Substance: CHOLECALCIFEROL
  11. COMBIVENT [Concomitant]
     Active Substance: ALBUTEROL SULFATE\IPRATROPIUM BROMIDE
     Dates: start: 20110920
  12. LANTUS [Concomitant]
     Active Substance: INSULIN GLARGINE
     Dates: start: 20110920
  13. NEXIUM [Suspect]
     Active Substance: ESOMEPRAZOLE MAGNESIUM
     Indication: GASTROOESOPHAGEAL REFLUX DISEASE
     Route: 048
     Dates: start: 2012, end: 2017
  14. HYDROCODONE [Concomitant]
     Active Substance: HYDROCODONE
     Dates: start: 20110920
  15. FENOFIBRATE. [Concomitant]
     Active Substance: FENOFIBRATE
     Dates: start: 20110920
  16. LOVAZA [Concomitant]
     Active Substance: OMEGA-3-ACID ETHYL ESTERS
     Dates: start: 20121108
  17. NEXIUM [Suspect]
     Active Substance: ESOMEPRAZOLE MAGNESIUM
     Indication: GASTROOESOPHAGEAL REFLUX DISEASE
     Route: 048
     Dates: start: 2009, end: 2016
  18. NEXIUM [Suspect]
     Active Substance: ESOMEPRAZOLE MAGNESIUM
     Indication: GASTROOESOPHAGEAL REFLUX DISEASE
     Route: 048
     Dates: start: 20120811
  19. ATORVASTATIN [Concomitant]
     Active Substance: ATORVASTATIN
     Dates: start: 2017
  20. LISINOPRIL. [Concomitant]
     Active Substance: LISINOPRIL
     Dates: start: 20110414
  21. LISINOPRIL. [Concomitant]
     Active Substance: LISINOPRIL
     Dates: start: 2017
  22. ASPIRIN. [Concomitant]
     Active Substance: ASPIRIN
  23. LEVOTHYROXINE. [Concomitant]
     Active Substance: LEVOTHYROXINE
     Dates: start: 20110414

REACTIONS (5)
  - Chronic obstructive pulmonary disease [Fatal]
  - Renal disorder [Unknown]
  - Acute respiratory failure [Fatal]
  - Cardiac failure congestive [Fatal]
  - Chronic kidney disease [Unknown]
